FAERS Safety Report 6692336-9 (Version None)
Quarter: 2010Q2

REPORT INFORMATION
  Report Type: 
  Country: None (occurrence: None)
  Receive Date: 20100419
  Receipt Date: 20100413
  Transmission Date: 20101027
  Serious: Yes (Other)
  Sender: FDA-Public Use
  Company Number: 2010SP021170

PATIENT
  Age: 82 Year
  Sex: Male

DRUGS (4)
  1. ONCOTICE [Suspect]
     Indication: BLADDER CANCER
     Dosage: 12.5 MG
     Dates: start: 20100325, end: 20100325
  2. FRUSEMIDE [Concomitant]
  3. LERCANIDIPINE [Concomitant]
  4. RAMIPRIL [Concomitant]

REACTIONS (7)
  - ATRIAL FIBRILLATION [None]
  - BRADYCARDIA [None]
  - COLD SWEAT [None]
  - FEELING COLD [None]
  - HYPERHIDROSIS [None]
  - NAUSEA [None]
  - PALLOR [None]
